FAERS Safety Report 7464263-0 (Version None)
Quarter: 2011Q2

REPORT INFORMATION
  Report Type: 
  Country: None (occurrence: None)
  Receive Date: 20110508
  Receipt Date: 20110427
  Transmission Date: 20111010
  Serious: No
  Sender: FDA-Public Use
  Company Number: US-ROXANE LABORATORIES, INC.-2011-RO-00579RO

PATIENT
  Sex: Female

DRUGS (5)
  1. FEXOFENADINE [Concomitant]
  2. PLAVIX [Concomitant]
  3. LASIX [Concomitant]
     Dosage: 25 MG
  4. FLUTICASONE PROPIONATE [Suspect]
     Indication: RHINITIS ALLERGIC
     Route: 055
     Dates: start: 20110115, end: 20110321
  5. BP MED [Concomitant]
     Indication: HYPERTENSION

REACTIONS (3)
  - AGEUSIA [None]
  - ANOSMIA [None]
  - EPISTAXIS [None]
